FAERS Safety Report 6909154-6 (Version None)
Quarter: 2010Q3

REPORT INFORMATION
  Report Type: 
  Country: None (occurrence: None)
  Receive Date: 20100805
  Receipt Date: 20090103
  Transmission Date: 20110219
  Serious: Yes (Other)
  Sender: FDA-Public Use
  Company Number: US-PFIZER INC-2008078307

PATIENT
  Age: 56 Year
  Sex: Female

DRUGS (2)
  1. LYRICA [Suspect]
     Indication: NEURALGIA
  2. CYMBALTA [Suspect]
     Indication: ABDOMINAL DISCOMFORT
     Dosage: 30 MG, UNK
     Dates: start: 20080929

REACTIONS (7)
  - ABDOMINAL PAIN LOWER [None]
  - BULIMIA NERVOSA [None]
  - DEPRESSION [None]
  - DRUG INEFFECTIVE [None]
  - NAUSEA [None]
  - PAIN [None]
  - WEIGHT INCREASED [None]
